FAERS Safety Report 7921539-8 (Version None)
Quarter: 2011Q4

REPORT INFORMATION
  Report Type: 
  Country: None (occurrence: None)
  Receive Date: 20111117
  Receipt Date: 20111114
  Transmission Date: 20120403
  Serious: Yes (Hospitalization)
  Sender: FDA-Public Use
  Company Number: US-CEPHALON-2011005810

PATIENT
  Sex: Female
  Weight: 47 kg

DRUGS (11)
  1. ROPINIROLE HYDROCHLORIDE [Concomitant]
  2. ACETAMINOPHEN [Concomitant]
  3. AVONEX [Concomitant]
  4. CLONAZEPAM [Concomitant]
  5. MULTI-VITAMIN [Concomitant]
  6. OMEPRAZOLE [Concomitant]
  7. FISH OIL [Concomitant]
  8. BENADRYL [Concomitant]
  9. NUVIGIL [Suspect]
     Indication: MULTIPLE SCLEROSIS
     Route: 048
     Dates: start: 20110714, end: 20110101
  10. LYRICA [Concomitant]
  11. AMANTADINE HCL [Concomitant]

REACTIONS (4)
  - HYPONATRAEMIA [None]
  - VOMITING [None]
  - DIZZINESS [None]
  - ASTHENIA [None]
